FAERS Safety Report 18149911 (Version 1)
Quarter: 2020Q3

REPORT INFORMATION
  Report Type: Spontaneous
  Country: US (occurrence: US)
  Receive Date: 20200813
  Receipt Date: 20200813
  Transmission Date: 20201103
  Serious: No
  Sender: FDA-Public Use
  Company Number: None

PATIENT
  Age: 58 Year
  Sex: Female

DRUGS (1)
  1. PICATO [Suspect]
     Active Substance: INGENOL MEBUTATE
     Indication: SKIN DISORDER
     Dosage: ?          OTHER DOSE:APPLY TO PRECANCER ROUTE:BEDTIME X 3 CONSECUTIVE NIGHTS AS DIRECT?
     Route: 061
     Dates: start: 202002

REACTIONS (1)
  - Staphylococcal infection [None]
